FAERS Safety Report 20426680 (Version 1)
Quarter: 2022Q1

REPORT INFORMATION
  Report Type: Report from Study
  Country: US (occurrence: US)
  Receive Date: 20220204
  Receipt Date: 20220204
  Transmission Date: 20220423
  Serious: No
  Sender: FDA-Public Use
  Company Number: US-EXELIXIS-CABO-21045795

PATIENT
  Age: 74 Year
  Sex: Male

DRUGS (8)
  1. CABOMETYX [Suspect]
     Active Substance: CABOZANTINIB S-MALATE
     Indication: Thyroid cancer
     Dosage: 40 MG
     Route: 048
  2. CABOMETYX [Suspect]
     Active Substance: CABOZANTINIB S-MALATE
     Dosage: 20 MG, QD
     Route: 048
     Dates: start: 20211104
  3. CABOMETYX [Suspect]
     Active Substance: CABOZANTINIB S-MALATE
     Dosage: 2 TABLETS OF 20 MG
     Route: 048
  4. CABOMETYX [Suspect]
     Active Substance: CABOZANTINIB S-MALATE
     Dosage: 20 MG, QD
     Route: 048
     Dates: start: 20211205, end: 20220117
  5. CABOMETYX [Suspect]
     Active Substance: CABOZANTINIB S-MALATE
     Dosage: 20 MG, QD
     Route: 048
     Dates: start: 20220120, end: 202201
  6. CABOMETYX [Suspect]
     Active Substance: CABOZANTINIB S-MALATE
     Dosage: 40 MG, QD (2 TABLETS OF 20 MG)
     Route: 048
     Dates: start: 202201, end: 202201
  7. KEFLEX [Suspect]
     Active Substance: CEPHALEXIN
     Indication: Urinary tract infection
     Dosage: UNK
  8. AMPICILLIN [Suspect]
     Active Substance: AMPICILLIN
     Indication: Urinary tract infection
     Dosage: UNK
     Dates: start: 202201, end: 20220117

REACTIONS (17)
  - Urinary tract infection [Unknown]
  - Eosinophil count increased [Unknown]
  - Mean cell haemoglobin increased [Unknown]
  - Mean platelet volume decreased [Unknown]
  - Blood creatinine decreased [Unknown]
  - Blood urea nitrogen/creatinine ratio increased [Unknown]
  - Blood thyroid stimulating hormone decreased [Recovered/Resolved]
  - Blood pressure increased [Unknown]
  - Headache [Unknown]
  - Thyroglobulin increased [Unknown]
  - Protein total decreased [Unknown]
  - White blood cell count decreased [Unknown]
  - Platelet count decreased [Unknown]
  - Lymphocyte count decreased [Unknown]
  - Blood albumin decreased [Unknown]
  - Blood calcium decreased [Unknown]
  - Dyspnoea [Unknown]

NARRATIVE: CASE EVENT DATE: 20211201
